FAERS Safety Report 7474429-1 (Version None)
Quarter: 2011Q2

REPORT INFORMATION
  Report Type: 
  Country: None (occurrence: None)
  Receive Date: 20110512
  Receipt Date: 20110216
  Transmission Date: 20111010
  Serious: No
  Sender: FDA-Public Use
  Company Number: US-BAYER-2011-016524

PATIENT
  Sex: Female

DRUGS (2)
  1. AVELOX [Suspect]
     Route: 048
  2. ADVAIR DISKUS 100/50 [Suspect]

REACTIONS (1)
  - TREMOR [None]
